FAERS Safety Report 4899304-8 (Version None)
Quarter: 2006Q1

REPORT INFORMATION
  Report Type: 
  Country: None (occurrence: None)
  Receive Date: 20060131
  Receipt Date: 20060119
  Transmission Date: 20060701
  Serious: Yes (Death, Other)
  Sender: FDA-Public Use
  Company Number: 2005026441

PATIENT
  Age: 68 Year
  Sex: Male
  Weight: 67 kg

DRUGS (9)
  1. CARDENALIN (DOXAZOSIN) [Suspect]
     Indication: HYPERTENSION
     Dosage: 8  MG (2 MG), ORAL
     Route: 048
     Dates: start: 20050121, end: 20050126
  2. MINIPRESS [Suspect]
     Indication: HYPERTENSION
     Dosage: 8 MG (2 MG), ORAL
     Route: 048
     Dates: start: 20050120, end: 20050126
  3. METOPROLOL TARTRATE [Concomitant]
  4. ADALAT [Concomitant]
  5. DIOVAN [Concomitant]
  6. CONIEL (BENIDIPINE HYDROCHLORIDE) [Concomitant]
  7. MICARDIS [Concomitant]
  8. AMLODIPINE [Concomitant]
  9. LOSARTAN POTASSIUM [Concomitant]

REACTIONS (9)
  - C-REACTIVE PROTEIN INCREASED [None]
  - DISSEMINATED INTRAVASCULAR COAGULATION [None]
  - DRUG ERUPTION [None]
  - DRUG HYPERSENSITIVITY [None]
  - HEPATIC NECROSIS [None]
  - HEPATITIS [None]
  - HERPES SIMPLEX [None]
  - MELAENA [None]
  - THALAMUS HAEMORRHAGE [None]
